FAERS Safety Report 5272679-6 (Version None)
Quarter: 2007Q1

REPORT INFORMATION
  Report Type: 
  Country: None (occurrence: None)
  Receive Date: 20070322
  Receipt Date: 20070307
  Transmission Date: 20070707
  Serious: Yes (Hospitalization)
  Sender: FDA-Public Use
  Company Number: US-AMGEN-STX214119

PATIENT
  Sex: Female

DRUGS (1)
  1. ENBREL [Suspect]
     Indication: PSORIASIS
     Route: 058
     Dates: start: 20010421

REACTIONS (4)
  - BLOOD POTASSIUM DECREASED [None]
  - CARDIAC FLUTTER [None]
  - DIZZINESS [None]
  - STOMACH DISCOMFORT [None]
